FAERS Safety Report 16096286 (Version 2)
Quarter: 2019Q1

REPORT INFORMATION
  Report Type: Spontaneous
  Country: US (occurrence: US)
  Receive Date: 20190320
  Receipt Date: 20190329
  Transmission Date: 20190418
  Serious: Yes (Other)
  Sender: FDA-Public Use
  Company Number: US-PURDUE-USA-2019-0146526

PATIENT
  Age: 52 Year
  Sex: Female

DRUGS (1)
  1. OXYCONTIN [Suspect]
     Active Substance: OXYCODONE HYDROCHLORIDE
     Indication: PAIN
     Dosage: UNK
     Route: 048
     Dates: start: 2013, end: 2013

REACTIONS (8)
  - Nervous system disorder [Unknown]
  - Medical device implantation [Unknown]
  - Arthritis [Unknown]
  - Stenosis [Unknown]
  - Burning sensation [Recovered/Resolved]
  - Osteoporosis [Unknown]
  - Spinal fusion surgery [Unknown]
  - Intervertebral disc degeneration [Unknown]

NARRATIVE: CASE EVENT DATE: 2013
